FAERS Safety Report 21459049 (Version 2)
Quarter: 2022Q4

REPORT INFORMATION
  Report Type: Spontaneous
  Country: DE (occurrence: DE)
  Receive Date: 20221014
  Receipt Date: 20221021
  Transmission Date: 20230113
  Serious: Yes (Other)
  Sender: FDA-Public Use
  Company Number: DE-ANIPHARMA-2022-DE-000184

PATIENT
  Age: 63 Year
  Sex: Female

DRUGS (3)
  1. ATACAND [Suspect]
     Active Substance: CANDESARTAN CILEXETIL
     Indication: Product used for unknown indication
     Dosage: REGULAR INTAKE FOR A LONGER PERIOD OF TIME
     Route: 065
  2. ENOXAPARIN SODIUM [Suspect]
     Active Substance: ENOXAPARIN SODIUM
     Route: 065
  3. INNOHEP [Suspect]
     Active Substance: TINZAPARIN SODIUM
     Route: 065

REACTIONS (3)
  - Venous thrombosis limb [Unknown]
  - Colitis ulcerative [Unknown]
  - Palpitations [Unknown]
